FAERS Safety Report 19880081 (Version 2)
Quarter: 2021Q4

REPORT INFORMATION
  Report Type: Spontaneous
  Country: CA (occurrence: CA)
  Receive Date: 20210924
  Receipt Date: 20211001
  Transmission Date: 20220303
  Serious: Yes (Life-Threatening)
  Sender: FDA-Public Use
  Company Number: 2021A733846

PATIENT
  Age: 22743 Day
  Sex: Male
  Weight: 90 kg

DRUGS (10)
  1. BRILINTA [Suspect]
     Active Substance: TICAGRELOR
     Route: 048
     Dates: start: 202101
  2. BRILINTA [Suspect]
     Active Substance: TICAGRELOR
     Route: 048
     Dates: start: 20210815
  3. EZETIMIBE [Concomitant]
     Active Substance: EZETIMIBE
     Route: 065
     Dates: start: 20210105
  4. LIPITOR [Concomitant]
     Active Substance: ATORVASTATIN CALCIUM
     Route: 065
     Dates: start: 20210105
  5. RAMIPRIL [Concomitant]
     Active Substance: RAMIPRIL
     Route: 048
     Dates: start: 20210501
  6. ASPIRIN [Concomitant]
     Active Substance: ASPIRIN
     Route: 065
  7. NITROGLYCERIN [Concomitant]
     Active Substance: NITROGLYCERIN
     Dosage: 1-3 SPRAY
     Route: 065
  8. TAMSULOSIN [Concomitant]
     Active Substance: TAMSULOSIN
     Route: 065
  9. VITAMIN D [Concomitant]
     Active Substance: VITAMIN D NOS
     Route: 065
  10. VITAMINS [Concomitant]
     Active Substance: VITAMINS
     Route: 065

REACTIONS (2)
  - Myocardial infarction [Unknown]
  - Inability to afford medication [Unknown]

NARRATIVE: CASE EVENT DATE: 20210827
